FAERS Safety Report 24548317 (Version 1)
Quarter: 2024Q4

REPORT INFORMATION
  Report Type: Spontaneous
  Country: US (occurrence: US)
  Receive Date: 20241025
  Receipt Date: 20241025
  Transmission Date: 20250115
  Serious: No
  Sender: XERIS PHARMACEUTICALS
  Company Number: US-BRIAN CONNER SVP QUALITY AND CHIEF COMPLIANCE OFFICER-2024XER00454

PATIENT
  Sex: Female

DRUGS (2)
  1. RECORLEV [Suspect]
     Active Substance: LEVOKETOCONAZOLE
     Indication: Pituitary-dependent Cushing^s syndrome
     Dosage: 150 MG, 2X/DAY
     Route: 048
     Dates: start: 202408, end: 2024
  2. RECORLEV [Suspect]
     Active Substance: LEVOKETOCONAZOLE
     Dosage: 150 MG, 3X/DAY
     Route: 048
     Dates: start: 20240809

REACTIONS (8)
  - Dizziness [Recovering/Resolving]
  - Nasopharyngitis [Recovered/Resolved]
  - Throat irritation [Recovered/Resolved]
  - Balance disorder [Not Recovered/Not Resolved]
  - Feeling abnormal [Recovering/Resolving]
  - Therapeutic product effect incomplete [Not Recovered/Not Resolved]
  - Disturbance in attention [Not Recovered/Not Resolved]
  - Menopausal symptoms [Not Recovered/Not Resolved]

NARRATIVE: CASE EVENT DATE: 20240101
